FAERS Safety Report 15264092 (Version 1)
Quarter: 2018Q3

REPORT INFORMATION
  Report Type: Report from Study
  Country: BE (occurrence: BE)
  Receive Date: 20180810
  Receipt Date: 20180810
  Transmission Date: 20181010
  Serious: Yes (Hospitalization, Other)
  Sender: FDA-Public Use
  Company Number: BE-TEVA-2018-BE-937256

PATIENT
  Age: 81 Year
  Sex: Female
  Weight: 69 kg

DRUGS (5)
  1. AVASTIN [Suspect]
     Active Substance: BEVACIZUMAB
     Indication: OVARIAN CANCER
     Dosage: LAST DOSE PRIOR TO SAE (DVT)
     Route: 042
     Dates: start: 20160122
  2. AVASTIN [Suspect]
     Active Substance: BEVACIZUMAB
     Dosage: MOST RECENT DOSE PRIOR TO SAE ON 04/MAR/2016.
     Route: 042
     Dates: start: 20160415, end: 20160415
  3. CARBOPLATIN. [Suspect]
     Active Substance: CARBOPLATIN
     Indication: OVARIAN CANCER
     Dosage: TO REACH THE AREA UNDER THE CONCENTRATION TIM CURVE (AUC) OF 4?DATE OF MOST RECENT DOSE OF CARBOPLAT
     Route: 042
     Dates: start: 20151002, end: 20160415
  4. PACLITAXEL. [Suspect]
     Active Substance: PACLITAXEL
     Indication: OVARIAN CANCER
     Dosage: DATE OF MOST RECENT DOSE OF PACLITAXEL (100, UNIT NOT REPORTED) PRIOR TO AE ONSET: 29/JAN/2016
     Route: 042
     Dates: start: 20151002, end: 20160415
  5. AVASTIN [Suspect]
     Active Substance: BEVACIZUMAB
     Route: 042
     Dates: start: 20151002

REACTIONS (6)
  - Hyperkalaemia [Recovered/Resolved]
  - Anaemia [Recovered/Resolved]
  - Hypertension [Recovered/Resolved]
  - Tumour haemorrhage [Recovered/Resolved]
  - Hypomagnesaemia [Not Recovered/Not Resolved]
  - Deep vein thrombosis [Recovered/Resolved]

NARRATIVE: CASE EVENT DATE: 20151002
